FAERS Safety Report 6814701-9 (Version None)
Quarter: 2010Q2

REPORT INFORMATION
  Report Type: 
  Country: None (occurrence: None)
  Receive Date: 20100629
  Receipt Date: 20100618
  Transmission Date: 20101027
  Serious: Yes (Hospitalization)
  Sender: FDA-Public Use
  Company Number: IPC201006-000167

PATIENT
  Age: 64 Year
  Sex: Female

DRUGS (11)
  1. FUROSEMIDE [Suspect]
     Dosage: 40 MG OD
  2. METFORMIN HCL [Suspect]
     Dosage: 1000 MG BID
  3. IRBESARTAN [Suspect]
     Dosage: 150 MG BID
  4. DIGOXIN [Suspect]
     Dosage: 0.25 MG OD
  5. METALAZONE [Suspect]
     Dosage: 2.5 MG, 1 IN 1 D
  6. GLYBURIDE [Suspect]
     Dosage: 10 MG, 2 IN 1 D
  7. VENLAFAXINE [Suspect]
     Dosage: 112.5 MG, 1 IN 1 D
  8. LEVOTHYROXINE SODIUM [Suspect]
     Dosage: 200 MCG, 1 IN 1 D
  9. OMEPRAZOLE [Suspect]
     Dosage: 20 MG, 1 IN 1 D
  10. LIPITOR [Suspect]
     Dosage: 10 MG, 1 IN 1 D
  11. DOMPERIDONE [Suspect]
     Dosage: 30 MG, 3 INN 1 D

REACTIONS (11)
  - ATRIAL FIBRILLATION [None]
  - DIZZINESS [None]
  - ELECTROCARDIOGRAM QT PROLONGED [None]
  - ELECTROCARDIOGRAM R ON T PHENOMENON [None]
  - ELECTROCARDIOGRAM ST SEGMENT ABNORMAL [None]
  - HYPOKALAEMIA [None]
  - HYPOMAGNESAEMIA [None]
  - LOSS OF CONSCIOUSNESS [None]
  - ROAD TRAFFIC ACCIDENT [None]
  - SYNCOPE [None]
  - TORSADE DE POINTES [None]
